FAERS Safety Report 21558799 (Version 1)
Quarter: 2022Q4

REPORT INFORMATION
  Report Type: Spontaneous
  Country: CA (occurrence: CA)
  Receive Date: 20221107
  Receipt Date: 20221107
  Transmission Date: 20230112
  Serious: Yes (Other)
  Sender: FDA-Public Use
  Company Number: CA-ORGANON-O2211CAN000309

PATIENT
  Sex: Female

DRUGS (2)
  1. FOSAMAX [Suspect]
     Active Substance: ALENDRONATE SODIUM
     Indication: Metastases to bone
     Dosage: 1 EVERY 1 WEEK
     Route: 065
  2. MELOXICAM [Concomitant]
     Active Substance: MELOXICAM
     Dosage: DOSAGE FORM: NOT SPECIFIED

REACTIONS (10)
  - Abdominal discomfort [Unknown]
  - Arthralgia [Unknown]
  - Arthritis [Unknown]
  - Burning sensation [Unknown]
  - Dysstasia [Unknown]
  - Eye irritation [Unknown]
  - Eye pain [Unknown]
  - Joint swelling [Unknown]
  - Nervousness [Unknown]
  - Pain [Unknown]
